FAERS Safety Report 11820146 (Version 1)
Quarter: 2015Q4

REPORT INFORMATION
  Report Type: Spontaneous
  Country: None (occurrence: None)
  Receive Date: 20151209
  Receipt Date: 20151209
  Transmission Date: 20160305
  Serious: Yes (Hospitalization)
  Sender: FDA-Public Use
  Company Number: None

PATIENT
  Age: 15 Year
  Sex: Female

DRUGS (28)
  1. VALPROATE [Suspect]
     Active Substance: VALPROIC ACID
  2. FENTANYL. [Concomitant]
     Active Substance: FENTANYL
  3. PHOSPHATE POTASSIUM [Concomitant]
  4. VALPROATE IN SODIUM CHLORIDE 0.9% (DEPACON) [Concomitant]
  5. DEXTROSE 10% [Concomitant]
  6. FLUTICASONE HFA [Concomitant]
  7. MIDAZOLAM [Concomitant]
     Active Substance: MIDAZOLAM\MIDAZOLAM HYDROCHLORIDE
  8. MIRALAX [Concomitant]
     Active Substance: POLYETHYLENE GLYCOL 3350
  9. AMPICILLIN-SULBACTAM [Concomitant]
  10. ARTIFICIAL TEARS PF [Concomitant]
  11. CALCIUM GLUCONATE. [Concomitant]
     Active Substance: CALCIUM GLUCONATE
  12. CEFEPIME [Concomitant]
     Active Substance: CEFEPIME HYDROCHLORIDE
  13. FLUTICASONE [Concomitant]
     Active Substance: FLUTICASONE\FLUTICASONE PROPIONATE
  14. HEPARIN [Concomitant]
     Active Substance: HEPARIN SODIUM
  15. ZOFRAN [Concomitant]
     Active Substance: ONDANSETRON HYDROCHLORIDE
  16. PROPOFOL (DIPRIVAN) [Concomitant]
  17. VANCOMYCIN (VANCOCIN) [Concomitant]
  18. POTASSIUM CHLORIDE. [Concomitant]
     Active Substance: POTASSIUM CHLORIDE
  19. ALBUMIN HUMAN 25% [Concomitant]
     Active Substance: ALBUMIN (HUMAN)
  20. GLYCOPYRROLATE. [Concomitant]
     Active Substance: GLYCOPYRROLATE
  21. ACETAMINOPHEN. [Concomitant]
     Active Substance: ACETAMINOPHEN
  22. ALBUTEROL HFA [Concomitant]
     Active Substance: ALBUTEROL SULFATE
  23. DOPAMINE [Concomitant]
     Active Substance: DOPAMINE\DOPAMINE HYDROCHLORIDE
  24. LIDOCAINE. [Concomitant]
     Active Substance: LIDOCAINE
  25. KEPPRA [Concomitant]
     Active Substance: LEVETIRACETAM
  26. MORPHINE PF [Concomitant]
  27. NITROFURANTOIN (FURADANTIN) [Concomitant]
  28. SODIUM CHLORIDE FLUSH [Concomitant]

REACTIONS (2)
  - Respiratory distress [None]
  - Pancreatitis acute [None]

NARRATIVE: CASE EVENT DATE: 20150518
